FAERS Safety Report 6941663-6 (Version None)
Quarter: 2010Q3

REPORT INFORMATION
  Report Type: 
  Country: None (occurrence: None)
  Receive Date: 20100825
  Receipt Date: 20100816
  Transmission Date: 20110219
  Serious: Yes (Hospitalization)
  Sender: FDA-Public Use
  Company Number: US-JNJFOC-20100509151

PATIENT
  Sex: Male
  Weight: 59.88 kg

DRUGS (4)
  1. REMICADE [Suspect]
     Indication: COLITIS ULCERATIVE
     Route: 042
  2. IMURAN [Suspect]
     Indication: COLITIS ULCERATIVE
     Route: 065
  3. SULFASALAZINE [Concomitant]
     Indication: COLITIS ULCERATIVE
     Route: 065
  4. PREDNISONE [Concomitant]
     Indication: COLITIS ULCERATIVE
     Route: 065

REACTIONS (2)
  - DRUG INEFFECTIVE [None]
  - PANCREATITIS [None]
